FAERS Safety Report 6008134-5 (Version None)
Quarter: 2008Q4

REPORT INFORMATION
  Report Type: 
  Country: None (occurrence: None)
  Receive Date: 20081217
  Receipt Date: 20080829
  Transmission Date: 20090506
  Serious: Yes (Hospitalization)
  Sender: FDA-Public Use
  Company Number: US-ASTRAZENECA-2008UW17992

PATIENT
  Age: 72 Year
  Sex: Male
  Weight: 75.3 kg

DRUGS (7)
  1. CRESTOR [Suspect]
     Indication: BLOOD CHOLESTEROL INCREASED
     Route: 048
     Dates: start: 20060701, end: 20060701
  2. CRESTOR [Suspect]
     Route: 048
     Dates: start: 20060801, end: 20080818
  3. LOPRESSOR [Concomitant]
  4. TRICOR [Concomitant]
  5. GLUCOPHAGE [Concomitant]
  6. NEXIUM [Concomitant]
     Route: 048
  7. FLOMAX [Concomitant]

REACTIONS (1)
  - RHABDOMYOLYSIS [None]
